FAERS Safety Report 25962966 (Version 1)
Quarter: 2025Q4

REPORT INFORMATION
  Report Type: Spontaneous
  Country: US (occurrence: None)
  Receive Date: 20251024
  Receipt Date: 20251024
  Transmission Date: 20260118
  Serious: Yes (Hospitalization)
  Sender: FDA-CTU
  Company Number: None

PATIENT
  Sex: Female

DRUGS (3)
  1. CUVITRU [Suspect]
     Active Substance: HUMAN IMMUNOGLOBULIN G
     Indication: Immunoglobulin therapy
     Dosage: OTHER STRENGTH : 2GM/10ML;?OTHER FREQUENCY : EVERY 2 WEEKS;?
     Route: 058
     Dates: start: 20230524
  2. CUVITRU [Suspect]
     Active Substance: HUMAN IMMUNOGLOBULIN G
     Indication: Immunoglobulin therapy
     Dosage: OTHER STRENGTH : 10GM/50ML;?OTHER FREQUENCY : EVERY 2 WEEKS;?
     Route: 058
     Dates: start: 20230524
  3. METOPROLOL [Suspect]
     Active Substance: METOPROLOL

REACTIONS (1)
  - Tachycardia [None]
